FAERS Safety Report 10018265 (Version 1)
Quarter: 2014Q1

REPORT INFORMATION
  Report Type: Spontaneous
  Country: US (occurrence: US)
  Receive Date: 20140318
  Receipt Date: 20140318
  Transmission Date: 20141002
  Serious: Yes (Other)
  Sender: FDA-Public Use
  Company Number: US-AMGEN-USASP2014018797

PATIENT
  Age: 57 Year
  Sex: Female

DRUGS (6)
  1. ENBREL [Suspect]
     Indication: RHEUMATOID ARTHRITIS
     Dosage: 50 MG, QWK
     Route: 058
     Dates: start: 2013
  2. PANTOPRAZOLE [Concomitant]
     Dosage: 20 MG, UNK
  3. PREDNISONE [Concomitant]
     Dosage: 5 MG, UNK
  4. FOLIC ACID [Concomitant]
     Dosage: UNK
  5. TYLENOL                            /00020001/ [Concomitant]
     Dosage: 325 MG, UNK
  6. HYDROCODONE/HOMATROP [Concomitant]
     Dosage: UNK

REACTIONS (3)
  - Surgery [Unknown]
  - Scab [Unknown]
  - Pruritus [Unknown]
